FAERS Safety Report 6664896-5 (Version None)
Quarter: 2010Q2

REPORT INFORMATION
  Report Type: 
  Country: None (occurrence: None)
  Receive Date: 20100402
  Receipt Date: 20100310
  Transmission Date: 20101027
  Serious: No
  Sender: FDA-Public Use
  Company Number: US-BIOGENIDEC-2010BI008244

PATIENT
  Age: 58 Year
  Sex: Male

DRUGS (1)
  1. TYSABRI [Suspect]
     Indication: MULTIPLE SCLEROSIS
     Dates: start: 20090226

REACTIONS (5)
  - DEPRESSED MOOD [None]
  - DRY MOUTH [None]
  - INSOMNIA [None]
  - POLLAKIURIA [None]
  - SUICIDAL IDEATION [None]
